FAERS Safety Report 14102021 (Version 1)
Quarter: 2017Q4

REPORT INFORMATION
  Report Type: Report from Study
  Country: GB (occurrence: GB)
  Receive Date: 20171018
  Receipt Date: 20171018
  Transmission Date: 20180321
  Serious: Yes (Death)
  Sender: FDA-Public Use
  Company Number: GB-ROCHE-2004110

PATIENT
  Sex: Female
  Weight: 85 kg

DRUGS (11)
  1. CARBOCYSTEINE [Concomitant]
     Active Substance: CARBOCYSTEINE
     Route: 048
     Dates: start: 20170920
  2. FUROSEMIDE. [Concomitant]
     Active Substance: FUROSEMIDE
     Dosage: PER HOUR
     Route: 042
     Dates: start: 20170925
  3. DALTEPARIN [Concomitant]
     Active Substance: DALTEPARIN
     Dosage: 5000UNITS
     Route: 058
     Dates: start: 20170917
  4. LAXIDO [Concomitant]
     Active Substance: POLYETHYLENE GLYCOL 3350\POTASSIUM CHLORIDE\SODIUM BICARBONATE\SODIUM CHLORIDE
     Dosage: 1 SACET
     Route: 048
     Dates: start: 20170919
  5. NOREPINEPHRINE. [Concomitant]
     Active Substance: NOREPINEPHRINE
     Dosage: 8MG IN 50M, AT 4 - 9ML/HOUR
     Route: 065
     Dates: start: 20170918
  6. PROPOFOL. [Concomitant]
     Active Substance: PROPOFOL
     Dosage: 1G/ 50ML, AT 7-18ML/HOUR
     Route: 065
     Dates: start: 20170918
  7. REMIFENTANIL [Concomitant]
     Active Substance: REMIFENTANIL
     Dosage: 5MG/50ML AT 5-10ML/HOUR
     Route: 065
     Dates: start: 20170918
  8. ENTERAL FEEDING [Concomitant]
     Route: 065
     Dates: start: 20170918
  9. MEROPENEM. [Concomitant]
     Active Substance: MEROPENEM
     Route: 042
     Dates: start: 20170922
  10. OMEPRAZOLE. [Concomitant]
     Active Substance: OMEPRAZOLE
     Route: 042
     Dates: start: 20170922
  11. HERCEPTIN [Suspect]
     Active Substance: TRASTUZUMAB
     Indication: BREAST CANCER
     Route: 058
     Dates: start: 20170116

REACTIONS (1)
  - Pneumonia [Fatal]
